FAERS Safety Report 8507057-7 (Version None)
Quarter: 2012Q3

REPORT INFORMATION
  Report Type: 
  Country: None (occurrence: None)
  Receive Date: 20120712
  Receipt Date: 20120703
  Transmission Date: 20120928
  Serious: Yes (Hospitalization, Other)
  Sender: FDA-Public Use
  Company Number: US-JNJFOC-20120400507

PATIENT
  Sex: Female
  Weight: 98.88 kg

DRUGS (12)
  1. HYDROXYCHLOROQUINE SULFATE [Concomitant]
     Indication: ARTHRITIS
  2. ACETAMINOPHEN [Suspect]
     Indication: PREMEDICATION
     Route: 048
     Dates: start: 20120307, end: 20120307
  3. HYDROCHLOROTHIAZIDE [Concomitant]
     Indication: HYPERTENSION
  4. CALCIUM WITH VITAMIN D [Concomitant]
  5. ACETAMINOPHEN [Suspect]
     Route: 048
  6. ASACOL [Concomitant]
     Indication: CROHN'S DISEASE
  7. QUINAPRIL [Concomitant]
     Indication: HYPERTENSION
  8. TRAMADOL HCL [Concomitant]
     Indication: ARTHRALGIA
  9. BENADRYL [Suspect]
     Indication: PREMEDICATION
     Route: 048
     Dates: start: 20120307, end: 20120307
  10. FLEXERIL [Concomitant]
  11. REMICADE [Suspect]
     Indication: PSORIATIC ARTHROPATHY
     Route: 042
     Dates: start: 20110629
  12. REMICADE [Suspect]
     Route: 042
     Dates: start: 20120306, end: 20120308

REACTIONS (3)
  - HYPERSENSITIVITY [None]
  - INFUSION RELATED REACTION [None]
  - HYPERTENSION [None]
